FAERS Safety Report 14054129 (Version 1)
Quarter: 2017Q4

REPORT INFORMATION
  Report Type: Spontaneous
  Country: US (occurrence: None)
  Receive Date: 20171006
  Receipt Date: 20171006
  Transmission Date: 20180321
  Serious: Yes (Hospitalization)
  Sender: FDA-Public Use
  Company Number: None

PATIENT
  Age: 78 Year
  Sex: Male
  Weight: 102.06 kg

DRUGS (9)
  1. PLAVIX [Concomitant]
     Active Substance: CLOPIDOGREL BISULFATE
  2. TAMSULOSIN [Concomitant]
     Active Substance: TAMSULOSIN
  3. ASPIRIN. [Concomitant]
     Active Substance: ASPIRIN
  4. ISOSORBIDE. [Concomitant]
     Active Substance: ISOSORBIDE
  5. EFFIENT [Suspect]
     Active Substance: PRASUGREL HYDROCHLORIDE
     Indication: THROMBOSIS PROPHYLAXIS
     Route: 048
     Dates: start: 20170602, end: 20170913
  6. ATORVASTATIN [Concomitant]
     Active Substance: ATORVASTATIN
  7. METOPROLOL. [Concomitant]
     Active Substance: METOPROLOL
  8. FUROSEMIDE. [Concomitant]
     Active Substance: FUROSEMIDE
  9. DEFIBULATOR [Concomitant]

REACTIONS (4)
  - Full blood count abnormal [None]
  - Dizziness [None]
  - Nausea [None]
  - Haemorrhage [None]

NARRATIVE: CASE EVENT DATE: 20170915
